FAERS Safety Report 4266210-1 (Version None)
Quarter: 2004Q1

REPORT INFORMATION
  Report Type: 
  Country: None (occurrence: None)
  Receive Date: 20040106
  Receipt Date: 20031221
  Transmission Date: 20041129
  Serious: No
  Sender: FDA-Public Use
  Company Number: 2003AP04444

PATIENT
  Age: 56 Year
  Sex: Male
  Weight: 67 kg

DRUGS (3)
  1. IRESSA [Suspect]
     Indication: NON-SMALL CELL LUNG CANCER
     Dosage: 250 MG DAILY PO
     Route: 048
     Dates: start: 20030922
  2. VIOXX [Concomitant]
  3. BONEFOS ^ASTRA^ [Concomitant]

REACTIONS (2)
  - EOSINOPHILIA [None]
  - PALMAR-PLANTAR ERYTHRODYSAESTHESIA SYNDROME [None]
